FAERS Safety Report 5932809-7 (Version None)
Quarter: 2008Q4

REPORT INFORMATION
  Report Type: 
  Country: None (occurrence: None)
  Receive Date: 20081028
  Receipt Date: 20081020
  Transmission Date: 20090506
  Serious: Yes (Disabling)
  Sender: FDA-Public Use
  Company Number: D0058402A

PATIENT
  Age: 53 Year
  Sex: Female
  Weight: 56 kg

DRUGS (3)
  1. VALTREX [Suspect]
     Indication: GENITAL HERPES
     Dosage: 250MG PER DAY
     Route: 048
     Dates: start: 19970101, end: 20081001
  2. FACTOR 8 [Concomitant]
     Route: 065
     Dates: start: 20070101
  3. XYZAL [Concomitant]
     Indication: URTICARIA
     Dosage: 10MG PER DAY
     Route: 065
     Dates: start: 20070401

REACTIONS (13)
  - ACTIVATED PARTIAL THROMBOPLASTIN TIME PROLONGED [None]
  - BONE MARROW FAILURE [None]
  - ECCHYMOSIS [None]
  - GAMMOPATHY [None]
  - HAEMATOMA [None]
  - HEPATIC NEOPLASM [None]
  - LYMPHADENOPATHY [None]
  - MULTIPLE MYELOMA [None]
  - OSTEOLYSIS [None]
  - OSTEOPENIA [None]
  - SCHNITZLER'S SYNDROME [None]
  - URTICARIA [None]
  - VON WILLEBRAND'S DISEASE [None]
